FAERS Safety Report 8534023-8 (Version None)
Quarter: 2012Q3

REPORT INFORMATION
  Report Type: 
  Country: None (occurrence: None)
  Receive Date: 20120724
  Receipt Date: 20120710
  Transmission Date: 20120928
  Serious: No
  Sender: FDA-Public Use
  Company Number: US-009507513-1207USA002865

PATIENT

DRUGS (1)
  1. MAXALT [Suspect]
     Dosage: 10 UNK, UNK
     Route: 048

REACTIONS (1)
  - ADVERSE EVENT [None]
